APPROVED DRUG PRODUCT: IBUPROFEN
Active Ingredient: IBUPROFEN
Strength: 400MG
Dosage Form/Route: TABLET;ORAL
Application: A070045 | Product #001
Applicant: PHARMOBEDIENT CONSULTING LLC
Approved: Sep 24, 1985 | RLD: No | RS: No | Type: DISCN